FAERS Safety Report 5029197-X (Version None)
Quarter: 2006Q2

REPORT INFORMATION
  Report Type: 
  Country: None (occurrence: None)
  Receive Date: 20060613
  Receipt Date: 20060606
  Transmission Date: 20061013
  Serious: Yes (Death, Other)
  Sender: FDA-Public Use
  Company Number: 24840

PATIENT
  Age: 51 Year
  Sex: Female
  Weight: 111.5849 kg

DRUGS (1)
  1. MITOMYCIN [Suspect]
     Indication: ANAL CANCER
     Dosage: 20MG IN 250ML INFUSION
     Dates: start: 20060206

REACTIONS (4)
  - CARDIAC PERFORATION [None]
  - CARDIAC TAMPONADE [None]
  - IATROGENIC INJURY [None]
  - PERICARDIAL DISEASE [None]
